FAERS Safety Report 4449280-7 (Version None)
Quarter: 2004Q3

REPORT INFORMATION
  Report Type: 
  Country: None (occurrence: None)
  Receive Date: 20040913
  Receipt Date: 20040902
  Transmission Date: 20050211
  Serious: Yes (Hospitalization)
  Sender: FDA-Public Use
  Company Number: 234040K04USA

PATIENT
  Age: 57 Year
  Sex: Female
  Weight: 172 kg

DRUGS (10)
  1. REBIF [Suspect]
     Indication: MULTIPLE SCLEROSIS
     Dosage: 44 MCG, 3 IN 1 WEEKS
     Dates: start: 20040101, end: 20040809
  2. NAPROSYN [Concomitant]
  3. FLEXERIL (CYCLOBENZAPRINE HYDROCHLORIED) [Concomitant]
  4. TOPROL-XL [Concomitant]
  5. HYZAAR [Concomitant]
  6. TYLENOL [Concomitant]
  7. ZETIA [Concomitant]
  8. EFFEXOR XR [Concomitant]
  9. LEVOTHYROXINE SODIUM [Concomitant]
  10. PREVACID [Concomitant]

REACTIONS (12)
  - BACK PAIN [None]
  - BACTERIAL INFECTION [None]
  - BLOOD GLUCOSE INCREASED [None]
  - BLOOD POTASSIUM DECREASED [None]
  - CONDITION AGGRAVATED [None]
  - FEELING ABNORMAL [None]
  - HYPERHIDROSIS [None]
  - HYPERTENSION [None]
  - HYPOTENSION [None]
  - LOSS OF CONSCIOUSNESS [None]
  - MUSCLE SPASMS [None]
  - WHITE BLOOD CELL COUNT INCREASED [None]
